FAERS Safety Report 9801209 (Version 2)
Quarter: 2014Q1

REPORT INFORMATION
  Report Type: Spontaneous
  Country: BR (occurrence: BR)
  Receive Date: 20140107
  Receipt Date: 20140116
  Transmission Date: 20141002
  Serious: Yes (Other)
  Sender: FDA-Public Use
  Company Number: BR-PFIZER INC-2014001604

PATIENT
  Age: 50 Year
  Sex: Male
  Weight: 84 kg

DRUGS (3)
  1. XALATAN [Suspect]
     Indication: INTRAOCULAR PRESSURE TEST
     Dosage: ONE DROP IN EACH EYE (3UG), 3X/DAY
     Route: 047
     Dates: start: 2013
  2. XALATAN [Suspect]
     Dosage: ONE DAY 1 DROP IN LEFT EYE (3X/DAY), NEXT DAY HE DOES NOT APPLY, NEXT DAY 1 DROP IN LEFT EYE (1X/DAY
  3. PREDFORT [Concomitant]

REACTIONS (3)
  - Visual acuity reduced [Recovering/Resolving]
  - Off label use [Not Recovered/Not Resolved]
  - Visual impairment [Not Recovered/Not Resolved]
